FAERS Safety Report 12195878 (Version 3)
Quarter: 2017Q2

REPORT INFORMATION
  Report Type: Spontaneous
  Country: US (occurrence: US)
  Receive Date: 20160321
  Receipt Date: 20170510
  Transmission Date: 20170830
  Serious: Yes (Hospitalization)
  Sender: FDA-Public Use
  Company Number: US-PFIZER INC-2016167225

PATIENT
  Age: 65 Year
  Sex: Female

DRUGS (8)
  1. METHOTREXATE. [Concomitant]
     Active Substance: METHOTREXATE
     Dosage: 20 MG, WEEKLY
  2. PREDNISONE. [Concomitant]
     Active Substance: PREDNISONE
     Dosage: 5 MG, 1X/DAY
  3. FISH OIL [Concomitant]
     Active Substance: FISH OIL
     Dosage: 360 MG, 1X/DAY
  4. XELJANZ [Suspect]
     Active Substance: TOFACITINIB CITRATE
     Indication: RHEUMATOID ARTHRITIS
     Dosage: 5 MG, UNK
  5. PANTOPRAZOLE SODIUM. [Concomitant]
     Active Substance: PANTOPRAZOLE SODIUM
     Dosage: 40 MG, 1X/DAY
  6. FOLIC ACID. [Concomitant]
     Active Substance: FOLIC ACID
     Dosage: 400 UG, 1X/DAY
  7. MONTELUKAST SODIUM. [Concomitant]
     Active Substance: MONTELUKAST SODIUM
     Dosage: 10 MG, 1X/DAY
  8. ALENDRONATE SODIUM. [Concomitant]
     Active Substance: ALENDRONATE SODIUM
     Dosage: 70 MG, WEEKLY

REACTIONS (3)
  - Bronchitis [Recovered/Resolved]
  - Asthma [Recovered/Resolved]
  - Functional gastrointestinal disorder [Unknown]
